FAERS Safety Report 8618655-4 (Version None)
Quarter: 2012Q3

REPORT INFORMATION
  Report Type: 
  Country: None (occurrence: None)
  Receive Date: 20120824
  Receipt Date: 20100412
  Transmission Date: 20120928
  Serious: No
  Sender: FDA-Public Use
  Company Number: US-PFIZER INC-AUR-APU-2010-01053

PATIENT
  Sex: Male

DRUGS (1)
  1. CEFPODOXIME PROXETIL [Suspect]
     Indication: EAR INFECTION
     Dosage: 100 MG/5 ML DAILY
     Route: 048

REACTIONS (4)
  - VOMITING [None]
  - ORAL DISCOMFORT [None]
  - THROAT IRRITATION [None]
  - DYSGEUSIA [None]
